FAERS Safety Report 13746906 (Version 1)
Quarter: 2017Q3

REPORT INFORMATION
  Report Type: Spontaneous
  Country: BR (occurrence: BR)
  Receive Date: 20170712
  Receipt Date: 20170712
  Transmission Date: 20171127
  Serious: Yes (Life-Threatening, Other)
  Sender: FDA-Public Use
  Company Number: BR-ASTRAZENECA-2017SE71094

PATIENT
  Age: 30 Year
  Sex: Female

DRUGS (8)
  1. LYRICA [Concomitant]
     Active Substance: PREGABALIN
     Indication: FIBROMYALGIA
     Dosage: TWO TIMES A DAY
     Dates: start: 201611, end: 201701
  2. DIPYRONE [Concomitant]
     Active Substance: DIPYRONE
     Indication: HEADACHE
     Dosage: FOUR TIMES A DAY
  3. OMEPRAZOLE. [Suspect]
     Active Substance: OMEPRAZOLE
     Indication: ABDOMINAL DISCOMFORT
     Route: 048
     Dates: start: 2005, end: 2016
  4. PARACETAMOL [Concomitant]
     Active Substance: ACETAMINOPHEN
     Indication: SPINAL PAIN
     Dates: start: 2015
  5. PARACETAMOL [Concomitant]
     Active Substance: ACETAMINOPHEN
     Indication: FIBROMYALGIA
     Dates: start: 2015
  6. DIPYRONE [Concomitant]
     Active Substance: DIPYRONE
     Indication: ABDOMINAL PAIN
     Dosage: FOUR TIMES A DAY
  7. LYRICA [Concomitant]
     Active Substance: PREGABALIN
     Indication: SPINAL PAIN
     Dosage: TWO TIMES A DAY
     Dates: start: 201611, end: 201701
  8. RANITIDINE. [Concomitant]
     Active Substance: RANITIDINE
     Dates: start: 2016

REACTIONS (10)
  - Spinal pain [Not Recovered/Not Resolved]
  - Suicide attempt [Recovered/Resolved]
  - Abortion [Recovered/Resolved]
  - Fibromyalgia [Not Recovered/Not Resolved]
  - Headache [Not Recovered/Not Resolved]
  - Abdominal distension [Recovering/Resolving]
  - Exposure during pregnancy [Recovered/Resolved]
  - Rheumatoid arthritis [Recovered/Resolved]
  - Hypersensitivity [Not Recovered/Not Resolved]
  - Exposure to toxic agent [Unknown]

NARRATIVE: CASE EVENT DATE: 2005
